FAERS Safety Report 6927886-0 (Version None)
Quarter: 2010Q3

REPORT INFORMATION
  Report Type: 
  Country: None (occurrence: None)
  Receive Date: 20100817
  Receipt Date: 20100810
  Transmission Date: 20110219
  Serious: Yes (Hospitalization, Other)
  Sender: FDA-Public Use
  Company Number: US-SANOFI-AVENTIS-2010SA041246

PATIENT
  Age: 78 Year
  Sex: Female
  Weight: 100 kg

DRUGS (5)
  1. APIDRA [Suspect]
     Dosage: DOSE:15 UNIT(S)
     Route: 058
  2. APIDRA [Suspect]
     Dosage: DOSE:17 UNIT(S)
     Route: 058
  3. LANTUS [Suspect]
     Dosage: DOSE:30 UNIT(S)
     Route: 058
     Dates: start: 20070101
  4. OPTICLICK [Suspect]
  5. OPTICLICK [Suspect]
     Dates: start: 20070101

REACTIONS (2)
  - KNEE OPERATION [None]
  - MYOCARDIAL INFARCTION [None]
